FAERS Safety Report 8075361-5 (Version None)
Quarter: 2012Q1

REPORT INFORMATION
  Report Type: 
  Country: None (occurrence: None)
  Receive Date: 20120120
  Receipt Date: 20120110
  Transmission Date: 20120608
  Serious: Yes (Other)
  Sender: FDA-Public Use
  Company Number: 2011SP056281

PATIENT
  Sex: Female

DRUGS (4)
  1. RIBAVIRIN [Suspect]
     Indication: HEPATITIS C
     Dates: start: 20040101, end: 20040201
  2. RIBAVIRIN [Suspect]
     Indication: HEPATITIS C
     Dates: start: 20111121
  3. PEGASYS [Suspect]
     Indication: HEPATITIS C
     Dates: start: 20040101, end: 20040201
  4. PEGASYS [Suspect]
     Indication: HEPATITIS C
     Dates: start: 20111121

REACTIONS (1)
  - APPENDICITIS [None]
